FAERS Safety Report 15664450 (Version 13)
Quarter: 2022Q2

REPORT INFORMATION
  Report Type: Spontaneous
  Country: BR (occurrence: BR)
  Receive Date: 20181128
  Receipt Date: 20220628
  Transmission Date: 20220721
  Serious: No
  Sender: FDA-Public Use
  Company Number: BR-GLAXOSMITHKLINE-BR2018GSK213762

PATIENT

DRUGS (2)
  1. NUCALA [Suspect]
     Active Substance: MEPOLIZUMAB
     Indication: Asthma
     Dosage: 100 MG, UNK
     Dates: start: 20181113
  2. AMOXICILLIN\CLAVULANATE POTASSIUM [Suspect]
     Active Substance: AMOXICILLIN\CLAVULANATE POTASSIUM
     Indication: Productive cough
     Dosage: UNK

REACTIONS (25)
  - Bronchospasm [Recovered/Resolved]
  - Increased viscosity of bronchial secretion [Unknown]
  - Varicose vein [Unknown]
  - Vomiting [Unknown]
  - Diarrhoea [Unknown]
  - Sinus congestion [Unknown]
  - Dyspnoea [Unknown]
  - Asthma [Unknown]
  - Fall [Unknown]
  - Head injury [Unknown]
  - Back injury [Unknown]
  - Fear [Unknown]
  - Pain [Unknown]
  - Erythema [Unknown]
  - Dysphonia [Unknown]
  - Speech disorder [Unknown]
  - Facetectomy [Recovering/Resolving]
  - Nasopharyngitis [Recovered/Resolved]
  - Productive cough [Unknown]
  - Arthralgia [Recovered/Resolved]
  - Nasal congestion [Recovering/Resolving]
  - Product availability issue [Unknown]
  - Incorrect product administration duration [Unknown]
  - Therapeutic product effect incomplete [Unknown]
  - Product use in unapproved indication [Unknown]

NARRATIVE: CASE EVENT DATE: 20181101
